FAERS Safety Report 5644393-6 (Version None)
Quarter: 2008Q1

REPORT INFORMATION
  Report Type: 
  Country: None (occurrence: None)
  Receive Date: 20080229
  Receipt Date: 20080219
  Transmission Date: 20080703
  Serious: Yes (Hospitalization, Other)
  Sender: FDA-Public Use
  Company Number: BE-NOVOPROD-272504

PATIENT
  Age: 46 Year
  Sex: Male
  Weight: 82 kg

DRUGS (14)
  1. NORDITROPIN [Suspect]
     Indication: DRUG USE FOR UNKNOWN INDICATION
     Dosage: .4 MG, QD
     Route: 058
     Dates: start: 20061130
  2. ATHYMIL [Concomitant]
     Dosage: 60 MG, QD
     Dates: start: 20070101
  3. DEPAKENE [Concomitant]
     Dosage: 1.5 G, QD
     Dates: start: 20040915, end: 20070101
  4. DEPAKENE [Concomitant]
     Dosage: 2 UNK, QD
     Dates: start: 20070101
  5. DIPIPERON [Concomitant]
     Dosage: 140 GTT, QD
     Dates: start: 20070101
  6. FLUDROCORTISONE ACETATE [Concomitant]
     Dosage: 50 UG, QD
     Dates: start: 20040915
  7. FOSAVANCE [Concomitant]
     Dosage: 70 MG, QD
     Dates: start: 20060101
  8. GARDENAL                           /00023201/ [Concomitant]
     Dosage: 100 MG, QD
     Dates: start: 20070101
  9. HYDROCORTISONE [Concomitant]
     Dosage: 40 MG, QD
     Dates: start: 19800101
  10. LEVOTHYROX [Concomitant]
     Dosage: 100 UG, QD
     Dates: start: 20071123, end: 20080117
  11. LEVOTHYROX [Concomitant]
     Dosage: 50 MG, QD
     Dates: start: 20060524, end: 20071007
  12. LEVOTHYROX [Concomitant]
     Dosage: 75 UG, QD
     Dates: start: 20071008, end: 20071129
  13. LOVENOX [Concomitant]
     Dosage: 4000 IU, QD
     Dates: start: 20070301, end: 20071018
  14. VALIUM [Concomitant]
     Dosage: 30 MG, QD
     Dates: start: 20070101

REACTIONS (1)
  - TIBIA FRACTURE [None]
